FAERS Safety Report 14662586 (Version 1)
Quarter: 2018Q1

REPORT INFORMATION
  Report Type: Report from Study
  Country: US (occurrence: US)
  Receive Date: 20180321
  Receipt Date: 20180321
  Transmission Date: 20180509
  Serious: No
  Sender: FDA-Public Use
  Company Number: US-THERATECHNOLOGIES, INC.-TH-2018-00209

PATIENT

DRUGS (13)
  1. TESTOSTERONE. [Concomitant]
     Active Substance: TESTOSTERONE
     Dosage: UNK
  2. EGRIFTA [Suspect]
     Active Substance: TESAMORELIN
     Dosage: UNK
     Route: 048
     Dates: start: 20180206, end: 20180307
  3. NASONEX [Concomitant]
     Active Substance: MOMETASONE FUROATE
     Dosage: UNK
  4. TENOFOVIR [Concomitant]
     Active Substance: TENOFOVIR
     Dosage: UNK
  5. ALFUZOSIN [Concomitant]
     Active Substance: ALFUZOSIN
     Dosage: UNK
  6. PROPECIA [Concomitant]
     Active Substance: FINASTERIDE
     Dosage: UNK
  7. NORTRIPTYLINE [Concomitant]
     Active Substance: NORTRIPTYLINE
     Dosage: UNK
  8. ATORVASTATIN [Concomitant]
     Active Substance: ATORVASTATIN
     Dosage: UNK
  9. VALTREX [Concomitant]
     Active Substance: VALACYCLOVIR HYDROCHLORIDE
     Dosage: UNK
  10. OTHER THERAPEUTIC PRODUCTS [Concomitant]
     Active Substance: UNSPECIFIED INGREDIENT
     Dosage: UNK
     Route: 047
  11. LOSARTAN. [Concomitant]
     Active Substance: LOSARTAN
     Dosage: UNK
  12. MELOXICAM. [Concomitant]
     Active Substance: MELOXICAM
     Dosage: UNK
  13. NEVIRAPINE. [Concomitant]
     Active Substance: NEVIRAPINE
     Dosage: UNK

REACTIONS (2)
  - Peripheral swelling [Not Recovered/Not Resolved]
  - Myalgia [Not Recovered/Not Resolved]

NARRATIVE: CASE EVENT DATE: 2018
